FAERS Safety Report 13486386 (Version 2)
Quarter: 2017Q2

REPORT INFORMATION
  Report Type: Spontaneous
  Country: SE (occurrence: GB)
  Receive Date: 20170426
  Receipt Date: 20170531
  Transmission Date: 20170830
  Serious: Yes (Death, Life-Threatening, Hospitalization)
  Sender: FDA-Public Use
  Company Number: SE-SHENZHEN TECHDOW PHARMACEUTICAL CO. LTD-GB-2017TEC0000027

PATIENT
  Age: 28 Year
  Sex: Female

DRUGS (1)
  1. HEPARIN SODIUM INJECTION USP, PRESERVATIVE FREE [Suspect]
     Active Substance: HEPARIN SODIUM
     Indication: PULMONARY EMBOLISM
     Dosage: UNK, 5000 E HEPARIN
     Route: 042

REACTIONS (4)
  - Cardio-respiratory arrest [Fatal]
  - Intra-abdominal haemorrhage [Fatal]
  - Brain herniation [Fatal]
  - Brain oedema [Fatal]
